FAERS Safety Report 7539295-4 (Version None)
Quarter: 2011Q2

REPORT INFORMATION
  Report Type: 
  Country: None (occurrence: None)
  Receive Date: 20110610
  Receipt Date: 20110531
  Transmission Date: 20111010
  Serious: Yes (Other)
  Sender: FDA-Public Use
  Company Number: US-ELI_LILLY_AND_COMPANY-US201102004891

PATIENT
  Sex: Male
  Weight: 62.132 kg

DRUGS (2)
  1. GLYBURIDE [Concomitant]
     Dosage: 5 MG, BID
  2. HUMULIN N [Suspect]
     Indication: DIABETES MELLITUS
     Dosage: 10 U, 2/D
     Route: 058
     Dates: start: 20070831

REACTIONS (1)
  - HYPOGLYCAEMIC UNCONSCIOUSNESS [None]
